FAERS Safety Report 5071607-6 (Version None)
Quarter: 2006Q3

REPORT INFORMATION
  Report Type: 
  Country: None (occurrence: None)
  Receive Date: 20060804
  Receipt Date: 20060801
  Transmission Date: 20061208
  Serious: Yes (Death)
  Sender: FDA-Public Use
  Company Number: 2006UW15419

PATIENT
  Age: 65 Year
  Sex: Male
  Weight: 95 kg

DRUGS (14)
  1. TENORMIN [Suspect]
     Indication: TACHYARRHYTHMIA
     Route: 048
  2. NIASPAN [Suspect]
     Indication: HIGH DENSITY LIPOPROTEIN DECREASED
     Route: 048
     Dates: start: 20060711, end: 20060711
  3. NIASPAN [Suspect]
     Indication: BLOOD CHOLESTEROL INCREASED
     Route: 048
     Dates: start: 20060711, end: 20060711
  4. WELLBUTRIN [Suspect]
     Indication: DEPRESSION
     Route: 048
  5. EFFEXOR [Suspect]
     Indication: DEPRESSION
     Route: 048
  6. LORAZEPAM [Suspect]
     Indication: DEPRESSION
     Route: 048
  7. TRAZODONE HCL [Suspect]
     Indication: DEPRESSION
     Route: 048
  8. LANOXIN [Suspect]
     Indication: TACHYARRHYTHMIA
     Route: 048
  9. GLUCOPHAGE [Suspect]
     Indication: DIABETES MELLITUS
     Route: 048
  10. GLUCOTROL XL [Suspect]
     Indication: DIABETES MELLITUS
     Route: 048
  11. ACTOS [Suspect]
     Indication: DIABETES MELLITUS
     Route: 048
  12. TRICOR [Suspect]
     Indication: DYSLIPIDAEMIA
     Route: 048
  13. LANTUS [Suspect]
     Indication: DIABETES MELLITUS
     Route: 058
  14. LIPITOR [Suspect]

REACTIONS (7)
  - BLOOD GLUCOSE INCREASED [None]
  - DRUG INTERACTION [None]
  - FLUSHING [None]
  - INCORRECT DOSE ADMINISTERED [None]
  - MEDICATION ERROR [None]
  - MYOCARDIAL INFARCTION [None]
  - RESPIRATORY ARREST [None]
